FAERS Safety Report 16286135 (Version 2)
Quarter: 2019Q2

REPORT INFORMATION
  Report Type: Spontaneous
  Country: US (occurrence: US)
  Receive Date: 20190508
  Receipt Date: 20190607
  Transmission Date: 20190711
  Serious: Yes (Other)
  Sender: FDA-Public Use
  Company Number: US-LEXICON PHARMACEUTICALS, INC-19-1606-00498

PATIENT
  Sex: Female

DRUGS (9)
  1. ZANTAC [Concomitant]
     Active Substance: RANITIDINE HYDROCHLORIDE
  2. TELOTRISTAT ETHYL [Suspect]
     Active Substance: TELOTRISTAT ETHYL
     Indication: CARCINOID SYNDROME
     Route: 048
     Dates: start: 20190314
  3. LUNESTA [Concomitant]
     Active Substance: ESZOPICLONE
  4. LEVOTHROID [Concomitant]
     Active Substance: LEVOTHYROXINE SODIUM
  5. METOPROLOL. [Concomitant]
     Active Substance: METOPROLOL
  6. TELOTRISTAT ETHYL [Suspect]
     Active Substance: TELOTRISTAT ETHYL
     Indication: CARCINOID TUMOUR PULMONARY
  7. SANDOSTATIN [Concomitant]
     Active Substance: OCTREOTIDE ACETATE
  8. LOSARTAN. [Concomitant]
     Active Substance: LOSARTAN
  9. BREO ELLIPTA [Concomitant]
     Active Substance: FLUTICASONE FUROATE\VILANTEROL TRIFENATATE

REACTIONS (3)
  - Flatulence [Not Recovered/Not Resolved]
  - Palpitations [Unknown]
  - Chest discomfort [Not Recovered/Not Resolved]
